FAERS Safety Report 9284596 (Version 4)
Quarter: 2013Q3

REPORT INFORMATION
  Report Type: Spontaneous
  Country: US (occurrence: US)
  Receive Date: 20130512
  Receipt Date: 20130824
  Transmission Date: 20140515
  Serious: No
  Sender: FDA-Public Use
  Company Number: US-009507513-1305USA003423

PATIENT
  Age: 43 Year
  Sex: Female
  Weight: 83.9 kg

DRUGS (1)
  1. SAPHRIS [Suspect]
     Indication: BIPOLAR DISORDER
     Dosage: 5 MG, ONCE
     Route: 060
     Dates: start: 20130402, end: 20130402

REACTIONS (4)
  - Oral pain [Recovered/Resolved]
  - Glossodynia [Recovered/Resolved]
  - Hypoaesthesia oral [Recovered/Resolved]
  - Underdose [Unknown]
